FAERS Safety Report 11036957 (Version 1)
Quarter: 2015Q2

REPORT INFORMATION
  Report Type: Spontaneous
  Country: CA (occurrence: None)
  Receive Date: 20150414
  Receipt Date: 20150414
  Transmission Date: 20150821
  Serious: Yes (Other)
  Sender: FDA-Public Use
  Company Number: 2817458

PATIENT
  Age: 60 Year
  Sex: Female
  Weight: 92 kg

DRUGS (13)
  1. ACTEMRA [Suspect]
     Active Substance: TOCILIZUMAB
     Indication: RHEUMATOID ARTHRITIS
     Route: 042
  2. RYTHMOL [Suspect]
     Active Substance: PROPAFENONE HYDROCHLORIDE
     Indication: PRODUCT USED FOR UNKNOWN INDICATION
     Route: 048
  3. BISOPROLOL [Concomitant]
     Active Substance: BISOPROLOL
  4. METHOTREXATE [Concomitant]
     Active Substance: METHOTREXATE
  5. FLOVENT [Concomitant]
     Active Substance: FLUTICASONE PROPIONATE
  6. TYLENOL [Concomitant]
     Active Substance: ACETAMINOPHEN
  7. PREDNISONE. [Concomitant]
     Active Substance: PREDNISONE
  8. SOTALOL. [Concomitant]
     Active Substance: SOTALOL
  9. DIOVAN [Concomitant]
     Active Substance: VALSARTAN
  10. FOLIC ACID. [Concomitant]
     Active Substance: FOLIC ACID
  11. MONTELUKAST SODIUM. [Concomitant]
     Active Substance: MONTELUKAST SODIUM
  12. CIPROFLOXACIN. [Suspect]
     Active Substance: CIPROFLOXACIN
     Indication: LUNG INFECTION
  13. ATORVASTATIN CALCIUM. [Suspect]
     Active Substance: ATORVASTATIN CALCIUM
     Indication: PRODUCT USED FOR UNKNOWN INDICATION
     Route: 048

REACTIONS (23)
  - Noninfective gingivitis [None]
  - Anxiety [None]
  - Blood glucose increased [None]
  - Infusion related reaction [None]
  - Pyrexia [None]
  - Palpitations [None]
  - Sinus congestion [None]
  - Diverticulum intestinal [None]
  - Dizziness [None]
  - Blood pressure increased [None]
  - Diverticulitis [None]
  - Oropharyngeal pain [None]
  - Gastric disorder [None]
  - Heart rate increased [None]
  - Lung infection [None]
  - Tremor [None]
  - Gingivitis [None]
  - Influenza [None]
  - Asthenia [None]
  - Diarrhoea [None]
  - Chills [None]
  - Haematochezia [None]
  - Weight increased [None]
